FAERS Safety Report 22243086 (Version 3)
Quarter: 2023Q4

REPORT INFORMATION
  Report Type: Spontaneous
  Country: US (occurrence: US)
  Receive Date: 20230424
  Receipt Date: 20231027
  Transmission Date: 20240110
  Serious: No
  Sender: FDA-Public Use
  Company Number: US-ELI_LILLY_AND_COMPANY-US202304010853

PATIENT
  Age: 37 Year
  Sex: Male

DRUGS (12)
  1. MOUNJARO [Suspect]
     Active Substance: TIRZEPATIDE
     Indication: Glucose tolerance impaired
     Dosage: 2.5 MG, UNKNOWN
     Route: 058
     Dates: start: 20221105
  2. MOUNJARO [Suspect]
     Active Substance: TIRZEPATIDE
     Indication: Metabolic syndrome
  3. MOUNJARO [Suspect]
     Active Substance: TIRZEPATIDE
     Indication: Glucose tolerance impaired
     Dosage: 5 MG, UNKNOWN
     Route: 058
     Dates: start: 202301
  4. MOUNJARO [Suspect]
     Active Substance: TIRZEPATIDE
     Indication: Metabolic syndrome
  5. MOUNJARO [Suspect]
     Active Substance: TIRZEPATIDE
     Indication: Glucose tolerance impaired
     Dosage: 7.5 MG, UNKNOWN
     Route: 058
  6. MOUNJARO [Suspect]
     Active Substance: TIRZEPATIDE
     Indication: Metabolic syndrome
  7. MOUNJARO [Suspect]
     Active Substance: TIRZEPATIDE
     Indication: Glucose tolerance impaired
     Dosage: 10 MG, UNKNOWN
     Route: 058
  8. MOUNJARO [Suspect]
     Active Substance: TIRZEPATIDE
     Indication: Metabolic syndrome
  9. MOUNJARO [Suspect]
     Active Substance: TIRZEPATIDE
     Indication: Glucose tolerance impaired
     Dosage: 12.5 MG, UNKNOWN
     Route: 058
     Dates: start: 202306
  10. MOUNJARO [Suspect]
     Active Substance: TIRZEPATIDE
     Indication: Metabolic syndrome
  11. MOUNJARO [Suspect]
     Active Substance: TIRZEPATIDE
     Indication: Glucose tolerance impaired
     Dosage: 15 MG, UNKNOWN
     Route: 058
  12. MOUNJARO [Suspect]
     Active Substance: TIRZEPATIDE
     Indication: Metabolic syndrome
     Dosage: 15 MG, UNKNOWN
     Route: 058

REACTIONS (8)
  - Injection site injury [Recovering/Resolving]
  - Dizziness [Unknown]
  - Off label use [Unknown]
  - Incorrect dose administered [Unknown]
  - Incorrect dose administered [Unknown]
  - Gastrooesophageal reflux disease [Recovering/Resolving]
  - Injection site haemorrhage [Recovering/Resolving]
  - Injection site pain [Unknown]

NARRATIVE: CASE EVENT DATE: 20221105
